FAERS Safety Report 7518164-X (Version None)
Quarter: 2011Q2

REPORT INFORMATION
  Report Type: 
  Country: None (occurrence: None)
  Receive Date: 20110512
  Receipt Date: 20110407
  Transmission Date: 20111010
  Serious: No
  Sender: FDA-Public Use
  Company Number: 1000019555

PATIENT
  Age: 50 Year

DRUGS (2)
  1. SAVELLA [Suspect]
  2. LYRICA [Suspect]

REACTIONS (4)
  - NAUSEA [None]
  - VOMITING [None]
  - TRANSAMINASES INCREASED [None]
  - HEPATIC FUNCTION ABNORMAL [None]
